FAERS Safety Report 17920280 (Version 5)
Quarter: 2020Q3

REPORT INFORMATION
  Report Type: Spontaneous
  Country: US (occurrence: US)
  Receive Date: 20200620
  Receipt Date: 20200727
  Transmission Date: 20201103
  Serious: No
  Sender: FDA-Public Use
  Company Number: US-AMGEN-USASP2020096112

PATIENT
  Age: 57 Year
  Sex: Male

DRUGS (1)
  1. NEUPOGEN [Suspect]
     Active Substance: FILGRASTIM
     Indication: PRODUCT USED FOR UNKNOWN INDICATION
     Dosage: 150 MILLIGRAM, 2 TIMES/WK
     Route: 065

REACTIONS (2)
  - Device use error [Unknown]
  - Headache [Unknown]

NARRATIVE: CASE EVENT DATE: 20200614
